FAERS Safety Report 4299388-4 (Version None)
Quarter: 2004Q1

REPORT INFORMATION
  Report Type: 
  Country: None (occurrence: None)
  Receive Date: 20040219
  Receipt Date: 20040127
  Transmission Date: 20041129
  Serious: No
  Sender: FDA-Public Use
  Company Number: US-GLAXOSMITHKLINE-A0496691A

PATIENT
  Sex: Female

DRUGS (1)
  1. AVODART [Suspect]
     Dosage: 5MG UNKNOWN
     Route: 050
     Dates: start: 20040127

REACTIONS (1)
  - EYE IRRITATION [None]
